FAERS Safety Report 10806872 (Version 1)
Quarter: 2015Q1

REPORT INFORMATION
  Report Type: Report from Study
  Country: US (occurrence: US)
  Receive Date: 20150217
  Receipt Date: 20150217
  Transmission Date: 20150721
  Serious: No
  Sender: FDA-Public Use
  Company Number: US-ABBVIE-14K-163-1260273-00

PATIENT
  Age: 65 Year
  Sex: Female

DRUGS (3)
  1. HUMIRA [Suspect]
     Active Substance: ADALIMUMAB
     Indication: RHEUMATOID ARTHRITIS
  2. LEVOTHYROXINE [Concomitant]
     Active Substance: LEVOTHYROXINE
     Indication: PRODUCT USED FOR UNKNOWN INDICATION
  3. HUMIRA [Suspect]
     Active Substance: ADALIMUMAB
     Dates: start: 2013, end: 201405

REACTIONS (14)
  - Rash [Unknown]
  - Rash erythematous [Unknown]
  - Gastrooesophageal reflux disease [Unknown]
  - Fall [Unknown]
  - Blister [Unknown]
  - Erythema [Unknown]
  - Peripheral swelling [Not Recovered/Not Resolved]
  - Herpes zoster [Unknown]
  - Joint swelling [Not Recovered/Not Resolved]
  - Dry eye [Unknown]
  - Wrist fracture [Unknown]
  - Arthralgia [Recovering/Resolving]
  - Pneumonia [Recovered/Resolved]
  - Pain in extremity [Recovering/Resolving]

NARRATIVE: CASE EVENT DATE: 2013
